FAERS Safety Report 8797724 (Version 1)
Quarter: 2012Q4

REPORT INFORMATION
  Report Type: 
  Country: US (occurrence: US)
  Receive Date: 20120920
  Receipt Date: 20120920
  Transmission Date: 20130627
  Serious: Yes (Other)
  Sender: FDA-Public Use
  Company Number: US-AMGEN-USASP2012058067

PATIENT
  Age: 51 Year
  Sex: Female

DRUGS (2)
  1. PROCRIT [Suspect]
     Indication: ANAEMIA
     Dosage: 20000 unit, 2 times/wk
     Dates: start: 20120724
  2. NEUPOGEN [Concomitant]
     Indication: HEPATITIS C
     Dosage: UNK

REACTIONS (3)
  - Haemoglobin decreased [Unknown]
  - White blood cell count decreased [Unknown]
  - Haematocrit decreased [Unknown]
